FAERS Safety Report 18292130 (Version 6)
Quarter: 2021Q1

REPORT INFORMATION
  Report Type: Other
  Country: CN (occurrence: CN)
  Receive Date: 20200922
  Receipt Date: 20210107
  Transmission Date: 20210419
  Serious: Yes (Other)
  Sender: FDA-Public Use
  Company Number: CN-ROCHE-2081262

PATIENT
  Age: 53 Year
  Sex: Male
  Weight: 62 kg

DRUGS (2)
  1. AVASTIN [Suspect]
     Active Substance: BEVACIZUMAB
     Indication: COLORECTAL CANCER
     Route: 041
     Dates: start: 20170715, end: 20190416
  2. AVASTIN [Suspect]
     Active Substance: BEVACIZUMAB
     Indication: COLON CANCER
     Route: 041

REACTIONS (26)
  - Diabetes mellitus [Unknown]
  - Limb mass [Recovered/Resolved]
  - Renal disorder [Unknown]
  - Hypoaesthesia [Not Recovered/Not Resolved]
  - Asthenia [Unknown]
  - Gait disturbance [Unknown]
  - White blood cell count decreased [Unknown]
  - Renal cyst [Unknown]
  - Gait inability [Unknown]
  - Peritoneal disorder [Unknown]
  - Pyrexia [Unknown]
  - Nasopharyngitis [Unknown]
  - Pneumonia [Unknown]
  - Anaemia [Unknown]
  - Hypoaesthesia [Unknown]
  - Emphysema [Unknown]
  - Dyspnoea [Unknown]
  - Discomfort [Unknown]
  - Decreased appetite [Unknown]
  - Pain [Unknown]
  - Vascular occlusion [Unknown]
  - General physical health deterioration [Unknown]
  - Diarrhoea [Unknown]
  - Oedema peripheral [Unknown]
  - Protein urine present [Unknown]
  - Cystic lung disease [Unknown]
